FAERS Safety Report 5074846-3 (Version None)
Quarter: 2006Q3

REPORT INFORMATION
  Report Type: 
  Country: None (occurrence: None)
  Receive Date: 20060804
  Receipt Date: 20060719
  Transmission Date: 20061208
  Serious: Yes (Hospitalization, Other)
  Sender: FDA-Public Use
  Company Number: US-2006-013526

PATIENT
  Age: 40 Year
  Sex: Female
  Weight: 63.5 kg

DRUGS (12)
  1. BETASERON [Suspect]
     Indication: MULTIPLE SCLEROSIS
     Dosage: SUBCUTANEOUS
     Route: 058
     Dates: start: 19951117, end: 20060401
  2. DEPAKENE [Concomitant]
  3. KEPPRA [Concomitant]
  4. OXYCODONE (OXYCODONE) [Concomitant]
  5. AMITRIPTYLINE (AMITRIPTYLINE) [Concomitant]
  6. PHENERGAN [Concomitant]
  7. POTASSIUM (POTASSIUM) [Concomitant]
  8. PROTONIX [Concomitant]
  9. CLONIDINE [Concomitant]
  10. LABETALOL HCL [Concomitant]
  11. SENOKOT /USA/ (SENNA ALEXANDRINA) [Concomitant]
  12. LEXAPRO [Concomitant]

REACTIONS (10)
  - BLOOD PRESSURE INCREASED [None]
  - BRAIN STEM INFARCTION [None]
  - CATHETER BACTERAEMIA [None]
  - CEREBROVASCULAR ACCIDENT [None]
  - DERMATITIS CONTACT [None]
  - LOCKED-IN SYNDROME [None]
  - PNEUMONIA ASPIRATION [None]
  - POSTOPERATIVE INFECTION [None]
  - STAPHYLOCOCCAL INFECTION [None]
  - TACHYCARDIA [None]
